FAERS Safety Report 4278908-X (Version None)
Quarter: 2004Q1

REPORT INFORMATION
  Report Type: 
  Country: None (occurrence: None)
  Receive Date: 20040126
  Receipt Date: 20040119
  Transmission Date: 20041129
  Serious: Yes (Death)
  Sender: FDA-Public Use
  Company Number: PHHO2004CO01197

PATIENT
  Age: 52 Year
  Sex: Female

DRUGS (2)
  1. FEMARA [Suspect]
     Indication: BREAST CANCER
     Dosage: 2.5 MG, QD
     Route: 048
     Dates: start: 20020601
  2. ZOMETA [Concomitant]
     Indication: METASTASES TO BONE
     Dosage: 4 MG/DAY
     Route: 048
     Dates: start: 20020601

REACTIONS (1)
  - PULMONARY THROMBOSIS [None]
